FAERS Safety Report 25957920 (Version 1)
Quarter: 2025Q4

REPORT INFORMATION
  Report Type: Spontaneous
  Country: US (occurrence: None)
  Receive Date: 20251023
  Receipt Date: 20251023
  Transmission Date: 20260118
  Serious: Yes (Death)
  Sender: FDA-CTU
  Company Number: None

PATIENT
  Age: 70 Year
  Sex: Female

DRUGS (2)
  1. ENTECAVIR [Suspect]
     Active Substance: ENTECAVIR
     Indication: Nephritic syndrome
     Dosage: 0.5 MG EVERY 3 DAYS ORAL
     Route: 048
     Dates: start: 20250605
  2. ENTECAVIR [Suspect]
     Active Substance: ENTECAVIR
     Indication: Glomerulonephritis

REACTIONS (1)
  - Death [None]

NARRATIVE: CASE EVENT DATE: 20250926
